FAERS Safety Report 5281996-5 (Version None)
Quarter: 2007Q1

REPORT INFORMATION
  Report Type: 
  Country: None (occurrence: None)
  Receive Date: 20061218
  Receipt Date: 20060614
  Transmission Date: 20070707
  Serious: Yes (Other)
  Sender: FDA-Public Use
  Company Number: US_0402101118

PATIENT
  Age: 40 Year
  Sex: Female

DRUGS (5)
  1. HUMULIN N [Suspect]
     Indication: DIABETES MELLITUS
     Dosage: 30 U, DAILY (1/D)
     Dates: start: 19920101, end: 19920101
  2. HUMULIN ULTRALENTE(HUMAN INSULIN (RDNA ORIGIN) ULTRALENTE UNKNOWN FORM [Suspect]
     Indication: DIABETES MELLITUS
  3. ILETIN [Suspect]
     Indication: DIABETES MELLITUS
     Dosage: 20 U, DAILY (1/D)
     Dates: start: 19620101
  4. ILETIN [Suspect]
     Indication: DIABETES MELLITUS
     Dosage: AS NEEDED
     Dates: start: 19620101
  5. PRENATAL VITAMINS [Concomitant]

REACTIONS (5)
  - DRUG EXPOSURE DURING PREGNANCY [None]
  - HYPOGLYCAEMIA [None]
  - HYPOGLYCAEMIA UNAWARENESS [None]
  - LOSS OF CONSCIOUSNESS [None]
  - TOOTH INFECTION [None]
